FAERS Safety Report 9210957 (Version 1)
Quarter: 2013Q2

REPORT INFORMATION
  Report Type: Spontaneous
  Country: US (occurrence: US)
  Receive Date: 20130404
  Receipt Date: 20130404
  Transmission Date: 20140414
  Serious: No
  Sender: FDA-Public Use
  Company Number: US-009507513-1304USA001092

PATIENT
  Sex: Male

DRUGS (3)
  1. NASONEX [Suspect]
     Indication: NASAL TURBINATE ABNORMALITY
     Dosage: INTRANASAL
     Dates: start: 2007
  2. ACIPHEX [Concomitant]
  3. CRESTOR [Concomitant]

REACTIONS (1)
  - Cataract [Not Recovered/Not Resolved]
